FAERS Safety Report 9382432 (Version 2)
Quarter: 2013Q3

REPORT INFORMATION
  Report Type: Spontaneous
  Country: US (occurrence: US)
  Receive Date: 20130703
  Receipt Date: 20130821
  Transmission Date: 20140515
  Serious: No
  Sender: FDA-Public Use
  Company Number: US-TEVA-416340USA

PATIENT
  Age: 23 Year
  Sex: Female
  Weight: 81.27 kg

DRUGS (2)
  1. PARAGARD 380A [Suspect]
     Indication: CONTRACEPTION
     Route: 015
     Dates: start: 20130603, end: 20130620
  2. DEXILANT [Concomitant]
     Indication: DYSPLASIA
     Dosage: 50 MILLIGRAM DAILY;
     Route: 048

REACTIONS (4)
  - Abdominal pain [Recovered/Resolved]
  - Nausea [Recovered/Resolved]
  - Metrorrhagia [Recovered/Resolved]
  - Menstruation irregular [Not Recovered/Not Resolved]
